FAERS Safety Report 8026359-4 (Version None)
Quarter: 2012Q1

REPORT INFORMATION
  Report Type: 
  Country: None (occurrence: None)
  Receive Date: 20120105
  Receipt Date: 20111229
  Transmission Date: 20120608
  Serious: Yes (Hospitalization)
  Sender: FDA-Public Use
  Company Number: US-ABBOTT-11P-163-0887847-00

PATIENT
  Age: 51 Year
  Sex: Female
  Weight: 115.32 kg

DRUGS (15)
  1. NUVIGIL [Concomitant]
     Indication: SOMNOLENCE
  2. FUROSEMIDE [Concomitant]
     Indication: PRODUCT USED FOR UNKNOWN INDICATION
     Dates: start: 20110101
  3. CRESTOR [Concomitant]
     Indication: PRODUCT USED FOR UNKNOWN INDICATION
  4. MULTI-VITAMIN [Concomitant]
     Indication: PRODUCT USED FOR UNKNOWN INDICATION
  5. WARFARIN [Concomitant]
     Dates: start: 20040101
  6. FLURAZEPAM [Concomitant]
     Indication: INSOMNIA
     Dosage: AT HS
  7. VITAMIN B-12 [Concomitant]
     Indication: PRODUCT USED FOR UNKNOWN INDICATION
  8. LEVOTHYROXINE SODIUM [Suspect]
     Indication: PRODUCT USED FOR UNKNOWN INDICATION
  9. SYNTHROID [Suspect]
     Indication: HYPOTHYROIDISM
     Dates: start: 20000101
  10. LEVOTHYROXINE SODIUM [Suspect]
  11. VITAMIN E [Concomitant]
     Indication: PRODUCT USED FOR UNKNOWN INDICATION
  12. NEXIUM [Concomitant]
     Indication: PRODUCT USED FOR UNKNOWN INDICATION
  13. TRICOR [Concomitant]
     Indication: BLOOD TRIGLYCERIDES INCREASED
  14. WARFARIN [Concomitant]
     Indication: PRODUCT USED FOR UNKNOWN INDICATION
     Dates: start: 20040101
  15. POTASSIUM CHLORIDE [Concomitant]
     Indication: PRODUCT USED FOR UNKNOWN INDICATION

REACTIONS (12)
  - PULMONARY EMBOLISM [None]
  - CONTUSION [None]
  - FALL [None]
  - LOSS OF CONSCIOUSNESS [None]
  - DYSPNOEA [None]
  - DEEP VEIN THROMBOSIS [None]
  - DEPRESSION [None]
  - OFF LABEL USE [None]
  - ANXIETY [None]
  - HYPERTENSION [None]
  - OXYGEN SATURATION DECREASED [None]
  - PROTHROMBIN LEVEL DECREASED [None]
